FAERS Safety Report 24026374 (Version 3)
Quarter: 2024Q3

REPORT INFORMATION
  Report Type: Report from Study
  Country: AT (occurrence: AT)
  Receive Date: 20240628
  Receipt Date: 20240710
  Transmission Date: 20241016
  Serious: No
  Sender: ROCHE
  Company Number: AT-ROCHE-3039324

PATIENT
  Age: 49 Year
  Sex: Female
  Weight: 51.0 kg

DRUGS (10)
  1. ALECTINIB [Suspect]
     Active Substance: ALECTINIB
     Indication: Non-small cell lung cancer
     Dosage: DOSE LAST STUDY DRUG ADMIN PRIOR AE: 600 MG?START DATE OF MOST RECENT DOSE OF STUDY DRUG PRIOR TO AE
     Route: 048
     Dates: start: 20220127
  2. ESCITALOPRAM [Concomitant]
     Active Substance: ESCITALOPRAM OXALATE
     Indication: Depression
     Route: 048
     Dates: start: 20210121
  3. LORLATINIB [Concomitant]
     Active Substance: LORLATINIB
     Dates: start: 20220726, end: 202209
  4. CARBOPLATIN [Concomitant]
     Active Substance: CARBOPLATIN
     Dates: start: 20220916, end: 20221123
  5. PEMETREXED [Concomitant]
     Active Substance: PEMETREXED
     Dates: start: 20220916, end: 20221123
  6. PEMBROLIZUMAB [Concomitant]
     Active Substance: PEMBROLIZUMAB
     Dates: start: 20220916, end: 20221123
  7. BRIGATINIB [Concomitant]
     Active Substance: BRIGATINIB
     Dosage: 180 MG
     Dates: start: 20230209
  8. ERYCYTOL (AUSTRIA) [Concomitant]
     Route: 030
     Dates: start: 20220914
  9. FOLIC ACID [Concomitant]
     Active Substance: FOLIC ACID
     Route: 048
     Dates: start: 20220914
  10. DEXAMETHASONE [Concomitant]
     Active Substance: DEXAMETHASONE
     Route: 048
     Dates: start: 20220914

REACTIONS (3)
  - Aspartate aminotransferase increased [Recovered/Resolved]
  - Oedema peripheral [Recovered/Resolved]
  - Alanine aminotransferase increased [Recovering/Resolving]

NARRATIVE: CASE EVENT DATE: 20220215
